FAERS Safety Report 13829736 (Version 1)
Quarter: 2017Q3

REPORT INFORMATION
  Report Type: Spontaneous
  Country: ES (occurrence: ES)
  Receive Date: 20170803
  Receipt Date: 20170803
  Transmission Date: 20171127
  Serious: Yes (Death, Hospitalization, Other)
  Sender: FDA-Public Use
  Company Number: ES-INCYTE CORPORATION-2017IN005902

PATIENT

DRUGS (1)
  1. JAKAVI [Suspect]
     Active Substance: RUXOLITINIB
     Indication: MYELOFIBROSIS
     Dosage: 20 MG, Q12H
     Route: 065

REACTIONS (9)
  - Encephalopathy [Fatal]
  - Blood sodium decreased [Unknown]
  - Blood pressure decreased [Unknown]
  - Escherichia infection [Unknown]
  - Conversion disorder [Not Recovered/Not Resolved]
  - Encephalitis [Unknown]
  - Haemoglobin decreased [Unknown]
  - Abnormal behaviour [Unknown]
  - Somnolence [Unknown]
